FAERS Safety Report 9249253 (Version 1)
Quarter: 2013Q2

REPORT INFORMATION
  Report Type: Spontaneous
  Country: US (occurrence: US)
  Receive Date: 20130422
  Receipt Date: 20130422
  Transmission Date: 20140414
  Serious: Yes (Other)
  Sender: FDA-Public Use
  Company Number: US-RB-052433-13

PATIENT
  Age: 0 None
  Sex: Female

DRUGS (2)
  1. SUBOXONE FILM [Suspect]
     Indication: DRUG DEPENDENCE
     Dosage: SUBOXONE FILM
     Route: 064
     Dates: start: 201207, end: 20130312
  2. NICOTINE [Suspect]
     Indication: NICOTINE DEPENDENCE
     Dosage: 5 CIGARETTES DAILY
     Route: 064
     Dates: start: 2012, end: 20130312

REACTIONS (6)
  - Foetal exposure during pregnancy [Recovered/Resolved]
  - Neonatal aspiration [Recovered/Resolved]
  - Drug withdrawal syndrome neonatal [Not Recovered/Not Resolved]
  - Crying [Not Recovered/Not Resolved]
  - Agitation neonatal [Not Recovered/Not Resolved]
  - Neonatal infection [Recovered/Resolved]
